FAERS Safety Report 4531926-6 (Version None)
Quarter: 2004Q4

REPORT INFORMATION
  Report Type: 
  Country: None (occurrence: None)
  Receive Date: 20041220
  Receipt Date: 20041206
  Transmission Date: 20050328
  Serious: Yes (Other)
  Sender: FDA-Public Use
  Company Number: US-GLAXOSMITHKLINE-A0536150A

PATIENT
  Sex: Female

DRUGS (1)
  1. SENSODYNE [Suspect]
     Indication: DENTAL CARE

REACTIONS (2)
  - HAND FRACTURE [None]
  - INTERVERTEBRAL DISC PROTRUSION [None]
